FAERS Safety Report 23153962 (Version 1)
Quarter: 2023Q4

REPORT INFORMATION
  Report Type: Spontaneous
  Country: US (occurrence: US)
  Receive Date: 20231107
  Receipt Date: 20231107
  Transmission Date: 20240110
  Serious: Yes (Hospitalization)
  Sender: FDA-Public Use
  Company Number: US-AMGEN-USASP2023192418

PATIENT
  Age: 61 Year
  Sex: Male

DRUGS (1)
  1. RITUXIMAB [Suspect]
     Active Substance: RITUXIMAB
     Indication: Cryoglobulinaemia
     Dosage: UNK
     Route: 065

REACTIONS (7)
  - Mitral valve incompetence [Unknown]
  - Endocarditis [Recovering/Resolving]
  - Chronic kidney disease [Unknown]
  - Glomerulonephritis [Unknown]
  - Transient ischaemic attack [Unknown]
  - Malaise [Recovering/Resolving]
  - Off label use [Unknown]
